FAERS Safety Report 23578953 (Version 1)
Quarter: 2024Q1

REPORT INFORMATION
  Report Type: Spontaneous
  Country: PL (occurrence: None)
  Receive Date: 20240229
  Receipt Date: 20240229
  Transmission Date: 20240410
  Serious: Yes (Hospitalization)
  Sender: FDA-Public Use
  Company Number: 2024A043742

PATIENT
  Sex: Female
  Weight: 60 kg

DRUGS (2)
  1. QUETIAPINE FUMARATE [Suspect]
     Active Substance: QUETIAPINE FUMARATE
     Dosage: 13 TABLETS AT ONCE; THE DRUG IS STILL USED CORRECT DOSAGE: 3 TIMES A DAY
     Route: 048
     Dates: start: 20231205
  2. ARIPIPRAZOLE [Suspect]
     Active Substance: ARIPIPRAZOLE
     Dosage: 10 TABLETS AT ONCE; THE DRUG IS STILL USED CORRECT DOSAGE: 3 TIMES A DAY
     Route: 048
     Dates: start: 20231205

REACTIONS (4)
  - Toxicity to various agents [Unknown]
  - Respiratory disorder [Unknown]
  - Dyspnoea [Unknown]
  - Poisoning deliberate [Unknown]

NARRATIVE: CASE EVENT DATE: 20231205
